FAERS Safety Report 4434327-4 (Version None)
Quarter: 2004Q3

REPORT INFORMATION
  Report Type: 
  Country: None (occurrence: None)
  Receive Date: 20040825
  Receipt Date: 20040813
  Transmission Date: 20050211
  Serious: Yes (Other)
  Sender: FDA-Public Use
  Company Number: HQWYE527021JUN04

PATIENT
  Age: 36 Year
  Sex: Male
  Weight: 135.29 kg

DRUGS (3)
  1. EFFEXOR XR [Suspect]
     Indication: DEPRESSION
     Dosage: 300 MG 1X PER 1 DAY, ORAL
     Route: 048
     Dates: start: 20040203, end: 20040630
  2. ZOCOR [Concomitant]
  3. LOTREL [Concomitant]

REACTIONS (4)
  - CONTUSION [None]
  - ERYTHEMA NODOSUM [None]
  - PAIN [None]
  - THROMBOSIS [None]
